FAERS Safety Report 22597673 (Version 1)
Quarter: 2023Q2

REPORT INFORMATION
  Report Type: Spontaneous
  Country: FR (occurrence: None)
  Receive Date: 20230614
  Receipt Date: 20230614
  Transmission Date: 20230721
  Serious: Yes (Other)
  Sender: FDA-Public Use
  Company Number: FR-Unichem Pharmaceuticals (USA) Inc-UCM202304-000533

PATIENT
  Age: 38 Year
  Sex: Female

DRUGS (111)
  1. ARIPIPRAZOLE [Suspect]
     Active Substance: ARIPIPRAZOLE
     Indication: Product used for unknown indication
     Dates: start: 20220610
  2. ARIPIPRAZOLE [Suspect]
     Active Substance: ARIPIPRAZOLE
     Dates: start: 20220611
  3. ARIPIPRAZOLE [Suspect]
     Active Substance: ARIPIPRAZOLE
     Dates: start: 20220612
  4. ARIPIPRAZOLE [Suspect]
     Active Substance: ARIPIPRAZOLE
     Dates: start: 20220613
  5. ARIPIPRAZOLE [Suspect]
     Active Substance: ARIPIPRAZOLE
     Dates: start: 20220622
  6. ARIPIPRAZOLE [Suspect]
     Active Substance: ARIPIPRAZOLE
     Dates: start: 20220623
  7. ARIPIPRAZOLE [Suspect]
     Active Substance: ARIPIPRAZOLE
     Dates: start: 20220624
  8. ARIPIPRAZOLE [Suspect]
     Active Substance: ARIPIPRAZOLE
     Dates: start: 20220625
  9. ARIPIPRAZOLE [Suspect]
     Active Substance: ARIPIPRAZOLE
     Dates: start: 20220626
  10. ARIPIPRAZOLE [Suspect]
     Active Substance: ARIPIPRAZOLE
     Dates: start: 20220701
  11. ARIPIPRAZOLE [Suspect]
     Active Substance: ARIPIPRAZOLE
     Dates: start: 20220705
  12. QUETIAPINE [Suspect]
     Active Substance: QUETIAPINE
     Indication: Product used for unknown indication
     Dates: start: 20220422
  13. QUETIAPINE [Suspect]
     Active Substance: QUETIAPINE
     Dates: start: 20220423
  14. QUETIAPINE [Suspect]
     Active Substance: QUETIAPINE
     Dates: start: 20220426
  15. QUETIAPINE [Suspect]
     Active Substance: QUETIAPINE
     Dates: start: 20220528
  16. LAMOTRIGINE [Suspect]
     Active Substance: LAMOTRIGINE
     Indication: Product used for unknown indication
     Dates: start: 20220608
  17. LAMOTRIGINE [Suspect]
     Active Substance: LAMOTRIGINE
     Dates: start: 20220610
  18. LAMOTRIGINE [Suspect]
     Active Substance: LAMOTRIGINE
     Dates: start: 20220611
  19. LAMOTRIGINE [Suspect]
     Active Substance: LAMOTRIGINE
     Dates: start: 20220612
  20. LAMOTRIGINE [Suspect]
     Active Substance: LAMOTRIGINE
     Dates: start: 20220613
  21. LAMOTRIGINE [Suspect]
     Active Substance: LAMOTRIGINE
     Dates: start: 20220622
  22. LAMOTRIGINE [Suspect]
     Active Substance: LAMOTRIGINE
     Dates: start: 20220623
  23. LAMOTRIGINE [Suspect]
     Active Substance: LAMOTRIGINE
     Dates: start: 20220624
  24. LAMOTRIGINE [Suspect]
     Active Substance: LAMOTRIGINE
     Dates: start: 20220625
  25. LAMOTRIGINE [Suspect]
     Active Substance: LAMOTRIGINE
     Dates: start: 20220626
  26. LAMOTRIGINE [Suspect]
     Active Substance: LAMOTRIGINE
     Dates: start: 20220701
  27. LAMOTRIGINE [Suspect]
     Active Substance: LAMOTRIGINE
     Dates: start: 20220705
  28. OLANZAPINE [Concomitant]
     Active Substance: OLANZAPINE
     Indication: Product used for unknown indication
     Dates: start: 20220706
  29. OLANZAPINE [Concomitant]
     Active Substance: OLANZAPINE
     Dates: start: 20220727
  30. OLANZAPINE [Concomitant]
     Active Substance: OLANZAPINE
     Dates: start: 20220826
  31. MIRTAZAPINE [Concomitant]
     Active Substance: MIRTAZAPINE
     Indication: Depressive symptom
  32. MIRTAZAPINE [Concomitant]
     Active Substance: MIRTAZAPINE
     Indication: Insomnia
     Dates: start: 20220610
  33. MIRTAZAPINE [Concomitant]
     Active Substance: MIRTAZAPINE
     Dates: start: 20220611
  34. MIRTAZAPINE [Concomitant]
     Active Substance: MIRTAZAPINE
     Dates: start: 20220612
  35. MIRTAZAPINE [Concomitant]
     Active Substance: MIRTAZAPINE
     Dates: start: 20220613
  36. MIRTAZAPINE [Concomitant]
     Active Substance: MIRTAZAPINE
     Dates: start: 20220622
  37. MIRTAZAPINE [Concomitant]
     Active Substance: MIRTAZAPINE
     Dates: start: 20220623
  38. MIRTAZAPINE [Concomitant]
     Active Substance: MIRTAZAPINE
     Dates: start: 20220624
  39. PAROXETINE [Concomitant]
     Active Substance: PAROXETINE
     Indication: Depressive symptom
     Dates: start: 20220423
  40. PAROXETINE [Concomitant]
     Active Substance: PAROXETINE
     Dates: start: 20220426
  41. PAROXETINE [Concomitant]
     Active Substance: PAROXETINE
     Dates: start: 20220528
  42. PAROXETINE [Concomitant]
     Active Substance: PAROXETINE
     Dates: start: 20220605
  43. PAROXETINE [Concomitant]
     Active Substance: PAROXETINE
     Dates: start: 20220608
  44. PAROXETINE [Concomitant]
     Active Substance: PAROXETINE
     Dates: start: 20220610
  45. PAROXETINE [Concomitant]
     Active Substance: PAROXETINE
     Dates: start: 20220611
  46. PAROXETINE [Concomitant]
     Active Substance: PAROXETINE
     Dates: start: 20220612
  47. PAROXETINE [Concomitant]
     Active Substance: PAROXETINE
     Dates: start: 20220613
  48. PAROXETINE [Concomitant]
     Active Substance: PAROXETINE
     Dates: start: 20220622
  49. PAROXETINE [Concomitant]
     Active Substance: PAROXETINE
     Dates: start: 20220623
  50. PAROXETINE [Concomitant]
     Active Substance: PAROXETINE
     Dates: start: 20220624
  51. PAROXETINE [Concomitant]
     Active Substance: PAROXETINE
     Dates: start: 20220625
  52. DIAZEPAM [Concomitant]
     Active Substance: DIAZEPAM
     Indication: Product used for unknown indication
     Dates: start: 20220422
  53. DIAZEPAM [Concomitant]
     Active Substance: DIAZEPAM
     Dates: start: 20220423
  54. DIAZEPAM [Concomitant]
     Active Substance: DIAZEPAM
     Dates: start: 20220426
  55. DIAZEPAM [Concomitant]
     Active Substance: DIAZEPAM
     Dates: start: 20220528
  56. DIAZEPAM [Concomitant]
     Active Substance: DIAZEPAM
     Dates: start: 20220605
  57. DIAZEPAM [Concomitant]
     Active Substance: DIAZEPAM
     Dates: start: 20220608
  58. DIAZEPAM [Concomitant]
     Active Substance: DIAZEPAM
     Dates: start: 20220610
  59. DIAZEPAM [Concomitant]
     Active Substance: DIAZEPAM
     Dates: start: 20220611
  60. DIAZEPAM [Concomitant]
     Active Substance: DIAZEPAM
     Dates: start: 20220612
  61. DIAZEPAM [Concomitant]
     Active Substance: DIAZEPAM
     Dates: start: 20220613
  62. DIAZEPAM [Concomitant]
     Active Substance: DIAZEPAM
     Dates: start: 20220622
  63. DIAZEPAM [Concomitant]
     Active Substance: DIAZEPAM
     Dates: start: 20220623
  64. DIAZEPAM [Concomitant]
     Active Substance: DIAZEPAM
     Dates: start: 20220624
  65. DIAZEPAM [Concomitant]
     Active Substance: DIAZEPAM
     Dates: start: 20220625
  66. DIAZEPAM [Concomitant]
     Active Substance: DIAZEPAM
     Dates: start: 20220626
  67. DIAZEPAM [Concomitant]
     Active Substance: DIAZEPAM
     Dates: start: 20220701
  68. DIAZEPAM [Concomitant]
     Active Substance: DIAZEPAM
     Dates: start: 20220705
  69. DIAZEPAM [Concomitant]
     Active Substance: DIAZEPAM
     Dates: start: 20220706
  70. DIAZEPAM [Concomitant]
     Active Substance: DIAZEPAM
     Dates: start: 20220727
  71. DIAZEPAM [Concomitant]
     Active Substance: DIAZEPAM
     Dates: start: 20220828
  72. CYAMEMAZINE [Concomitant]
     Active Substance: CYAMEMAZINE
     Indication: Product used for unknown indication
     Dates: start: 20220422
  73. CYAMEMAZINE [Concomitant]
     Active Substance: CYAMEMAZINE
     Dates: start: 20220423
  74. CYAMEMAZINE [Concomitant]
     Active Substance: CYAMEMAZINE
     Dates: start: 20220426
  75. CYAMEMAZINE [Concomitant]
     Active Substance: CYAMEMAZINE
     Dates: start: 20220528
  76. CYAMEMAZINE [Concomitant]
     Active Substance: CYAMEMAZINE
     Dates: start: 20220605
  77. CYAMEMAZINE [Concomitant]
     Active Substance: CYAMEMAZINE
     Dates: start: 20220608
  78. CYAMEMAZINE [Concomitant]
     Active Substance: CYAMEMAZINE
     Dates: start: 20220610
  79. CYAMEMAZINE [Concomitant]
     Active Substance: CYAMEMAZINE
     Dates: start: 20220611
  80. CYAMEMAZINE [Concomitant]
     Active Substance: CYAMEMAZINE
     Dates: start: 20220612
  81. CYAMEMAZINE [Concomitant]
     Active Substance: CYAMEMAZINE
     Dates: start: 20220613
  82. CYAMEMAZINE [Concomitant]
     Active Substance: CYAMEMAZINE
     Dates: start: 20220622
  83. CYAMEMAZINE [Concomitant]
     Active Substance: CYAMEMAZINE
     Dates: start: 20220623
  84. CYAMEMAZINE [Concomitant]
     Active Substance: CYAMEMAZINE
     Dates: start: 20220624
  85. CYAMEMAZINE [Concomitant]
     Active Substance: CYAMEMAZINE
     Dates: start: 20220625
  86. CYAMEMAZINE [Concomitant]
     Active Substance: CYAMEMAZINE
     Dates: start: 20220626
  87. CYAMEMAZINE [Concomitant]
     Active Substance: CYAMEMAZINE
     Dates: start: 20220701
  88. CYAMEMAZINE [Concomitant]
     Active Substance: CYAMEMAZINE
     Dates: start: 20220705
  89. CYAMEMAZINE [Concomitant]
     Active Substance: CYAMEMAZINE
     Dates: start: 20220706
  90. CYAMEMAZINE [Concomitant]
     Active Substance: CYAMEMAZINE
     Dates: start: 20220727
  91. CYAMEMAZINE [Concomitant]
     Active Substance: CYAMEMAZINE
     Dates: start: 20220828
  92. ZOPICLONE [Concomitant]
     Active Substance: ZOPICLONE
     Indication: Product used for unknown indication
     Dates: start: 20220422
  93. ZOPICLONE [Concomitant]
     Active Substance: ZOPICLONE
     Dates: start: 20220423
  94. ZOPICLONE [Concomitant]
     Active Substance: ZOPICLONE
     Dates: start: 20220426
  95. ZOPICLONE [Concomitant]
     Active Substance: ZOPICLONE
     Dates: start: 20220528
  96. ZOPICLONE [Concomitant]
     Active Substance: ZOPICLONE
     Dates: start: 20220605
  97. ZOPICLONE [Concomitant]
     Active Substance: ZOPICLONE
     Dates: start: 20220608
  98. ZOPICLONE [Concomitant]
     Active Substance: ZOPICLONE
     Dates: start: 20220610
  99. ZOPICLONE [Concomitant]
     Active Substance: ZOPICLONE
     Dates: start: 20220611
  100. ZOPICLONE [Concomitant]
     Active Substance: ZOPICLONE
     Dates: start: 20220612
  101. ZOPICLONE [Concomitant]
     Active Substance: ZOPICLONE
     Dates: start: 20220613
  102. ZOPICLONE [Concomitant]
     Active Substance: ZOPICLONE
     Dates: start: 20220622
  103. ZOPICLONE [Concomitant]
     Active Substance: ZOPICLONE
     Dates: start: 20220623
  104. ZOPICLONE [Concomitant]
     Active Substance: ZOPICLONE
     Dates: start: 20220624
  105. ZOPICLONE [Concomitant]
     Active Substance: ZOPICLONE
     Dates: start: 20220625
  106. ZOPICLONE [Concomitant]
     Active Substance: ZOPICLONE
     Dates: start: 20220626
  107. ZOPICLONE [Concomitant]
     Active Substance: ZOPICLONE
     Dates: start: 20220701
  108. ZOPICLONE [Concomitant]
     Active Substance: ZOPICLONE
     Dates: start: 20220705
  109. ZOPICLONE [Concomitant]
     Active Substance: ZOPICLONE
     Dates: start: 20220706
  110. ZOPICLONE [Concomitant]
     Active Substance: ZOPICLONE
     Dates: start: 20220727
  111. ZOPICLONE [Concomitant]
     Active Substance: ZOPICLONE
     Dates: start: 20220828

REACTIONS (5)
  - Drug interaction [Unknown]
  - Hallucination [Recovered/Resolved]
  - Dystonia [Unknown]
  - Delusion [Recovered/Resolved]
  - Confusional state [Recovered/Resolved]
